FAERS Safety Report 16408981 (Version 1)
Quarter: 2019Q2

REPORT INFORMATION
  Report Type: Spontaneous
  Country: DE (occurrence: DE)
  Receive Date: 20190610
  Receipt Date: 20190610
  Transmission Date: 20190711
  Serious: Yes (Other)
  Sender: FDA-Public Use
  Company Number: PHHY2019DE028206

PATIENT

DRUGS (18)
  1. FLUDARABINE [Suspect]
     Active Substance: FLUDARABINE PHOSPHATE
     Indication: BONE MARROW CONDITIONING REGIMEN
  2. THIOTEPA. [Suspect]
     Active Substance: THIOTEPA
     Indication: BONE MARROW CONDITIONING REGIMEN
     Dosage: UNK
     Route: 065
  3. FLUDARABINE [Suspect]
     Active Substance: FLUDARABINE PHOSPHATE
     Indication: STEM CELL TRANSPLANT
     Dosage: UNK
     Route: 065
  4. THIOTEPA. [Suspect]
     Active Substance: THIOTEPA
     Indication: DIFFUSE LARGE B-CELL LYMPHOMA
  5. TREOSULFAN [Suspect]
     Active Substance: TREOSULFAN
     Indication: DIFFUSE LARGE B-CELL LYMPHOMA
  6. IBRITUMOMAB TIUXETAN [Suspect]
     Active Substance: IBRITUMOMAB TIUXETAN
     Indication: BONE MARROW CONDITIONING REGIMEN
     Dosage: 1.4 GBQ, UNK
     Route: 065
  7. THIOTEPA. [Suspect]
     Active Substance: THIOTEPA
     Indication: STEM CELL TRANSPLANT
  8. ANTITHYMOCYTE IMMUNOGLOBULIN [Suspect]
     Active Substance: THYMOCYTE IMMUNE GLOBULIN NOS
     Indication: BONE MARROW CONDITIONING REGIMEN
     Route: 065
  9. RITUXIMAB. [Suspect]
     Active Substance: RITUXIMAB
     Indication: BONE MARROW CONDITIONING REGIMEN
     Dosage: 250 MG/M2, UNK (ON THE DAY OF RADIOIMMUNOTHERAPY )
     Route: 065
  10. PREDNISOLONE. [Concomitant]
     Active Substance: PREDNISOLONE
  11. FLUDARABINE [Suspect]
     Active Substance: FLUDARABINE PHOSPHATE
     Indication: DIFFUSE LARGE B-CELL LYMPHOMA
  12. ANTITHYMOCYTE IMMUNOGLOBULIN [Suspect]
     Active Substance: THYMOCYTE IMMUNE GLOBULIN NOS
     Indication: DIFFUSE LARGE B-CELL LYMPHOMA
  13. ZEVALIN [Suspect]
     Active Substance: IBRITUMOMAB TIUXETAN
     Indication: STEM CELL TRANSPLANT
     Dosage: 15 MBQ/KG 7 DAYS AFTER RLT
     Route: 065
  14. TREOSULFAN [Suspect]
     Active Substance: TREOSULFAN
     Indication: STEM CELL TRANSPLANT
  15. CYCLOPHOSPHAMIDE. [Concomitant]
     Active Substance: CYCLOPHOSPHAMIDE
     Route: 048
  16. RITUXIMAB. [Suspect]
     Active Substance: RITUXIMAB
     Indication: DIFFUSE LARGE B-CELL LYMPHOMA
  17. TREOSULFAN [Suspect]
     Active Substance: TREOSULFAN
     Indication: BONE MARROW CONDITIONING REGIMEN
     Dosage: UNK
     Route: 065
  18. ZEVALIN [Suspect]
     Active Substance: IBRITUMOMAB TIUXETAN
     Indication: DIFFUSE LARGE B-CELL LYMPHOMA
     Dosage: 1.4 GBQ, SINGLE
     Route: 042

REACTIONS (6)
  - Neutropenia [Unknown]
  - Anti-neutrophil cytoplasmic antibody positive vasculitis [Unknown]
  - Tooth infection [Unknown]
  - Off label use [Unknown]
  - Immunoglobulins decreased [Unknown]
  - Pneumonia [Unknown]
